FAERS Safety Report 7694598-8 (Version None)
Quarter: 2011Q3

REPORT INFORMATION
  Report Type: 
  Country: None (occurrence: None)
  Receive Date: 20110816
  Receipt Date: 20110801
  Transmission Date: 20111222
  Serious: Yes (Other)
  Sender: FDA-Public Use
  Company Number: AUR-APL-2011-01080

PATIENT
  Age: 56 Year
  Sex: Male

DRUGS (1)
  1. FINASTERIDE [Suspect]
     Indication: PRODUCT USED FOR UNKNOWN INDICATION
     Dosage: 1 MG, 1 D

REACTIONS (2)
  - PSEUDOPORPHYRIA [None]
  - BLISTER [None]
